FAERS Safety Report 15942364 (Version 2)
Quarter: 2019Q1

REPORT INFORMATION
  Report Type: Spontaneous
  Country: US (occurrence: US)
  Receive Date: 20190209
  Receipt Date: 20190215
  Transmission Date: 20190417
  Serious: Yes (Other)
  Sender: FDA-Public Use
  Company Number: US-ASTRAZENECA-2019SE22809

PATIENT

DRUGS (7)
  1. NEXIUM [Suspect]
     Active Substance: ESOMEPRAZOLE MAGNESIUM
     Indication: GASTROINTESTINAL DISORDER
     Dosage: FOR MULTIPLE AND VARIOUS YEARS
     Route: 048
  2. NEXIUM 24HR [Suspect]
     Active Substance: ESOMEPRAZOLE MAGNESIUM
     Indication: GASTROINTESTINAL DISORDER
     Dosage: FOR MULTIPLE AND VARIOUS YEARS
     Route: 048
  3. DEXILANT [Suspect]
     Active Substance: DEXLANSOPRAZOLE
     Indication: GASTROINTESTINAL DISORDER
     Dosage: FOR MULTIPLE AND VARIOUS YEARS
     Route: 065
  4. PROTONIX [Suspect]
     Active Substance: PANTOPRAZOLE SODIUM
     Indication: GASTROINTESTINAL DISORDER
     Dosage: FOR MULTIPLE AND VARIOUS YEARS
     Route: 065
  5. PRILOSEC [Suspect]
     Active Substance: OMEPRAZOLE MAGNESIUM
     Indication: GASTROINTESTINAL DISORDER
     Dosage: FOR MULTIPLE AND VARIOUS YEARS
     Route: 048
  6. PRILOSEC OTC [Suspect]
     Active Substance: OMEPRAZOLE MAGNESIUM
     Indication: GASTROINTESTINAL DISORDER
     Dosage: FOR MULTIPLE AND VARIOUS YEARS
     Route: 048
  7. PREVACID [Suspect]
     Active Substance: LANSOPRAZOLE
     Indication: GASTROINTESTINAL DISORDER
     Dosage: FOR MULTIPLE AND VARIOUS YEARS
     Route: 065

REACTIONS (5)
  - Renal failure [Unknown]
  - Renal injury [Unknown]
  - Drug dependence [Unknown]
  - Rebound acid hypersecretion [Unknown]
  - Pain [Unknown]
